FAERS Safety Report 9681253 (Version 1)
Quarter: 2013Q4

REPORT INFORMATION
  Report Type: Spontaneous
  Country: US (occurrence: None)
  Receive Date: 20131108
  Receipt Date: 20131108
  Transmission Date: 20140711
  Serious: Yes (Life-Threatening)
  Sender: FDA-Public Use
  Company Number: None

PATIENT
  Age: 56 Year
  Sex: Female
  Weight: 75.75 kg

DRUGS (1)
  1. Q-VAR [Suspect]
     Indication: BRONCHIOLITIS
     Dosage: TWO PUFFS TWICE DAILY TAKEN BY MOUTH
     Route: 048
     Dates: start: 20090801, end: 20131107

REACTIONS (4)
  - Thirst [None]
  - Hallucination [None]
  - Diabetes mellitus [None]
  - Hypersomnia [None]
